FAERS Safety Report 12866128 (Version 4)
Quarter: 2017Q1

REPORT INFORMATION
  Report Type: Report from Study
  Country: US (occurrence: US)
  Receive Date: 20161020
  Receipt Date: 20170316
  Transmission Date: 20170428
  Serious: Yes (Other)
  Sender: FDA-Public Use
  Company Number: US-BIOGEN-2016BI00307120

PATIENT
  Age: 53 Year
  Sex: Female

DRUGS (1)
  1. TYSABRI [Suspect]
     Active Substance: NATALIZUMAB
     Indication: MULTIPLE SCLEROSIS
     Route: 065
     Dates: start: 20150623, end: 20161017

REACTIONS (3)
  - Breast cancer [Not Recovered/Not Resolved]
  - Lymphadenopathy [Unknown]
  - Lymphoma [Unknown]

NARRATIVE: CASE EVENT DATE: 201610
